FAERS Safety Report 9715009 (Version 1)
Quarter: 2013Q4

REPORT INFORMATION
  Report Type: Spontaneous
  Country: US (occurrence: US)
  Receive Date: 20131126
  Receipt Date: 20131126
  Transmission Date: 20140711
  Serious: No
  Sender: FDA-Public Use
  Company Number: US-NOVEN-13US007713

PATIENT
  Sex: Female

DRUGS (4)
  1. MINIVELLE [Suspect]
     Indication: HORMONE REPLACEMENT THERAPY
     Dosage: 0.05 MG/DAY, UNK
     Route: 062
     Dates: start: 2013
  2. MINIVELLE [Suspect]
     Dosage: .05 MG/DAY, UNK
  3. TESTOSTERONE [Concomitant]
     Indication: HORMONE REPLACEMENT THERAPY
     Dosage: 3 MG, DISSOLVE 1/2 IN MOUTH TWICE DAILY
     Route: 048
  4. PROGESTERONE [Concomitant]
     Dosage: 100 MG, QD
     Route: 048

REACTIONS (4)
  - Incorrect drug administration duration [Recovered/Resolved]
  - Off label use [Not Recovered/Not Resolved]
  - Product quality issue [Not Recovered/Not Resolved]
  - No adverse event [None]
